FAERS Safety Report 19994924 (Version 1)
Quarter: 2021Q4

REPORT INFORMATION
  Report Type: Spontaneous
  Country: US (occurrence: US)
  Receive Date: 20211026
  Receipt Date: 20211026
  Transmission Date: 20220303
  Serious: No
  Sender: FDA-Public Use
  Company Number: US-ACCORD-237119

PATIENT
  Age: 63 Year
  Sex: Female
  Weight: 65.77 kg

DRUGS (1)
  1. TACROLIMUS [Suspect]
     Active Substance: TACROLIMUS
     Indication: Swelling of eyelid
     Dosage: TWICE A DAY
     Route: 061
     Dates: start: 20210819

REACTIONS (2)
  - Nausea [Recovered/Resolved]
  - Hyperhidrosis [Recovered/Resolved]
